FAERS Safety Report 9933263 (Version 1)
Quarter: 2014Q1

REPORT INFORMATION
  Report Type: Spontaneous
  Country: US (occurrence: US)
  Receive Date: 20140228
  Receipt Date: 20140228
  Transmission Date: 20141002
  Serious: No
  Sender: FDA-Public Use
  Company Number: US-ABBVIE-14P-163-1199720-00

PATIENT
  Sex: Male

DRUGS (1)
  1. ANDROGEL [Suspect]
     Indication: BLOOD TESTOSTERONE DECREASED
     Route: 061

REACTIONS (4)
  - Poor quality drug administered [Not Recovered/Not Resolved]
  - Malaise [Recovered/Resolved]
  - Incorrect product storage [Recovered/Resolved]
  - Product quality issue [Recovered/Resolved]
